FAERS Safety Report 21018074 (Version 1)
Quarter: 2022Q2

REPORT INFORMATION
  Report Type: Spontaneous
  Country: US (occurrence: US)
  Receive Date: 20220628
  Receipt Date: 20220628
  Transmission Date: 20220720
  Serious: Yes (Other)
  Sender: FDA-Public Use
  Company Number: US-INTRA-CELLULAR THERAPIES, INC.-2022ICT00682

PATIENT
  Age: 24 Year
  Sex: Male

DRUGS (3)
  1. CAPLYTA [Suspect]
     Active Substance: LUMATEPERONE
     Indication: Schizophrenia
     Dosage: UNK
     Dates: start: 2022, end: 2022
  2. ABILIFY [Concomitant]
     Active Substance: ARIPIPRAZOLE
  3. UNSPECIFIED INGREDIENT [Concomitant]
     Active Substance: UNSPECIFIED INGREDIENT

REACTIONS (2)
  - Homicide [Not Recovered/Not Resolved]
  - Theft [Not Recovered/Not Resolved]

NARRATIVE: CASE EVENT DATE: 20220606
